FAERS Safety Report 4973256-4 (Version None)
Quarter: 2006Q2

REPORT INFORMATION
  Report Type: 
  Country: None (occurrence: None)
  Receive Date: 20060414
  Receipt Date: 20060403
  Transmission Date: 20061013
  Serious: Yes (Other)
  Sender: FDA-Public Use
  Company Number: US-JNJFOC-20051205724

PATIENT
  Sex: Female

DRUGS (4)
  1. TOPAMAX [Suspect]
  2. FOLIC ACID [Concomitant]
  3. ASPIRIN [Concomitant]
  4. AMOXICILLIN [Concomitant]
     Route: 048

REACTIONS (3)
  - ABORTION SPONTANEOUS [None]
  - DRUG EXPOSURE DURING PREGNANCY [None]
  - UPPER RESPIRATORY TRACT INFECTION [None]
